FAERS Safety Report 8118479-0 (Version None)
Quarter: 2012Q1

REPORT INFORMATION
  Report Type: 
  Country: None (occurrence: None)
  Receive Date: 20120207
  Receipt Date: 20120127
  Transmission Date: 20120608
  Serious: Yes (Hospitalization)
  Sender: FDA-Public Use
  Company Number: US-JNJFOC-20120107638

PATIENT
  Sex: Male
  Weight: 68.04 kg

DRUGS (6)
  1. MOTRIN IB [Suspect]
     Indication: INFLAMMATORY BOWEL DISEASE
     Route: 048
  2. LIBRIUM [Concomitant]
     Indication: ANXIETY
     Route: 065
  3. MOTRIN IB [Suspect]
     Route: 048
  4. NATURAL SUPPLEMENTS [Suspect]
     Indication: IRRITABLE BOWEL SYNDROME
     Dosage: 1-2 MG
     Route: 048
     Dates: start: 20111201
  5. PROPECIA [Concomitant]
     Indication: ALOPECIA
     Route: 065
  6. RESTORIL [Concomitant]
     Indication: SLEEP DISORDER THERAPY
     Route: 065

REACTIONS (2)
  - OFF LABEL USE [None]
  - GASTRIC ULCER HAEMORRHAGE [None]
